FAERS Safety Report 12690137 (Version 1)
Quarter: 2016Q3

REPORT INFORMATION
  Report Type: Report from Study
  Country: US (occurrence: US)
  Receive Date: 20160826
  Receipt Date: 20160826
  Transmission Date: 20161109
  Serious: Yes (Hospitalization)
  Sender: FDA-Public Use
  Company Number: US-MALLINCKRODT-T201603762

PATIENT
  Age: 26 Year
  Sex: Female

DRUGS (1)
  1. REPOSITORY CORTICOTROPIN INJECTION [Suspect]
     Active Substance: CORTICOTROPIN
     Indication: PRODUCT USED FOR UNKNOWN INDICATION
     Dosage: 80 UNITS, TWICE WEEKLY
     Route: 058
     Dates: start: 20160802, end: 20160811

REACTIONS (4)
  - Unevaluable event [Unknown]
  - Proteinuria [Unknown]
  - Albuminuria [Unknown]
  - Bence Jones proteinuria [Unknown]

NARRATIVE: CASE EVENT DATE: 20160811
